FAERS Safety Report 6980522-X (Version None)
Quarter: 2010Q3

REPORT INFORMATION
  Report Type: 
  Country: None (occurrence: None)
  Receive Date: 20100914
  Receipt Date: 20100902
  Transmission Date: 20110219
  Serious: Yes (Hospitalization, Disabling, Other)
  Sender: FDA-Public Use
  Company Number: PHHY2010BR58363

PATIENT
  Sex: Female

DRUGS (5)
  1. EXELON [Suspect]
     Indication: CEREBRAL ISCHAEMIA
     Dosage: 3 MG, 1 CAPSULE PER DAY
     Route: 048
     Dates: start: 20100501
  2. LEVOMEPROMAZINE HYDROCHLORIDE [Concomitant]
     Indication: CEREBRAL ISCHAEMIA
     Dosage: 4 DROPS PER DAY
     Route: 048
     Dates: start: 20090101
  3. RISPERIDONE [Concomitant]
     Indication: CEREBRAL ISCHAEMIA
     Dosage: 1 TABLET DAILY
     Dates: start: 20090101
  4. AMITRIPTYLINE HCL [Concomitant]
     Indication: CEREBRAL ISCHAEMIA
     Dosage: 1 TABLET DAILY
     Route: 048
     Dates: start: 20090101
  5. RIVOTRIL [Concomitant]
     Indication: CEREBRAL ISCHAEMIA
     Dosage: 1 TABLET DAILY
     Route: 048
     Dates: start: 20090101

REACTIONS (5)
  - BEDRIDDEN [None]
  - CEREBROVASCULAR ACCIDENT [None]
  - CHOKING [None]
  - DYSARTHRIA [None]
  - HYPOKINESIA [None]
